FAERS Safety Report 22388247 (Version 3)
Quarter: 2023Q2

REPORT INFORMATION
  Report Type: Report from Study
  Country: AT (occurrence: AT)
  Receive Date: 20230531
  Receipt Date: 20230627
  Transmission Date: 20230721
  Serious: Yes (Hospitalization, Other)
  Sender: FDA-Public Use
  Company Number: AT-AMGEN-AUTCT2023078606

PATIENT
  Age: 78 Year
  Sex: Male

DRUGS (22)
  1. CARFILZOMIB [Suspect]
     Active Substance: CARFILZOMIB
     Indication: Plasma cell myeloma
     Dosage: 43 MILLIGRAM, PER CHEMO REGIM
     Route: 042
     Dates: start: 20230417
  2. CARFILZOMIB [Suspect]
     Active Substance: CARFILZOMIB
     Dosage: 118.72 MILLIGRAM, PER CHEMO REGIM
     Route: 042
     Dates: start: 20230425
  3. MEZIGDOMIDE [Suspect]
     Active Substance: MEZIGDOMIDE
     Indication: Plasma cell myeloma
     Dosage: 1 MILLIGRAM, PER CHEMO REGIM
     Route: 048
     Dates: start: 20230417
  4. DEXAMETHASONE [Suspect]
     Active Substance: DEXAMETHASONE
     Indication: Plasma cell myeloma
     Dosage: 20 MILLIGRAM, PER CHEMO REGIME
     Route: 065
     Dates: start: 20230417
  5. ATORVASTATIN [Concomitant]
     Active Substance: ATORVASTATIN
     Indication: Hypercholesterolaemia
     Dosage: 20 MILLIGRAM (1 IN 1 DAY)
     Route: 048
     Dates: start: 2022
  6. Lidaprim [Concomitant]
     Indication: Hypertension
     Dosage: 160 MILLIGRAM 2 IN 1 WEEK
     Route: 048
     Dates: start: 2022
  7. ERYTHROPOIETIN [Concomitant]
     Active Substance: ERYTHROPOIETIN
     Indication: Anaemia
     Dosage: 30000 INTERNATIONAL UNIT, QWK
     Route: 058
     Dates: start: 202212, end: 20230503
  8. ASPIRIN [Concomitant]
     Active Substance: ASPIRIN
     Indication: Coronary artery disease
     Dosage: 100 MILLIGRAM, QD
     Route: 048
     Dates: start: 20161219
  9. HYDROCHLOROTHIAZIDE\VALSARTAN [Concomitant]
     Active Substance: HYDROCHLOROTHIAZIDE\VALSARTAN
     Indication: Hypertension
     Dosage: UNK (1 IN DAY 1)
     Route: 048
     Dates: start: 20161219
  10. HUMAN RED BLOOD CELL [Concomitant]
     Active Substance: HUMAN RED BLOOD CELL
     Dosage: UNK
  11. HYDROMORPHONE HYDROCHLORIDE [Concomitant]
     Active Substance: HYDROMORPHONE HYDROCHLORIDE
     Indication: Prophylaxis
     Dosage: 2 MILLIGRS, 2 IN 1 DAY), 1.3 MILLIGRAMS
     Route: 048
     Dates: start: 20221228
  12. HYDROMORPHONE HYDROCHLORIDE [Concomitant]
     Active Substance: HYDROMORPHONE HYDROCHLORIDE
     Indication: Osteoarthritis
  13. Novalgin [Concomitant]
     Indication: Prophylaxis
     Dosage: 500 MILLIGRAM
     Route: 048
     Dates: start: 20221228
  14. VALACYCLOVIR HYDROCHLORIDE [Concomitant]
     Active Substance: VALACYCLOVIR HYDROCHLORIDE
     Indication: Prophylaxis
     Dosage: 500 MILLIGRAM, QD
     Route: 048
     Dates: start: 20221228
  15. DUTAGLANDIN [Concomitant]
     Indication: Benign prostatic hyperplasia
     Dosage: 0.5 MILLIGRAM, QD
     Route: 048
     Dates: start: 20221229
  16. ALLOPURINOL [Concomitant]
     Active Substance: ALLOPURINOL
     Indication: Prophylaxis
     Dosage: 100 MILLIGRAM, QD
     Route: 048
     Dates: start: 20230201
  17. GEROFOL [Concomitant]
     Indication: Anaemia
     Dosage: 5 MILLIGRAM, QD
     Route: 048
     Dates: start: 20230314
  18. Maxi-kalz [Concomitant]
     Indication: Prophylaxis
     Dosage: 15 GTT DROPS (2 IN 1 DAY)
     Route: 048
     Dates: start: 20230314
  19. CHOLECALCIFEROL [Concomitant]
     Active Substance: CHOLECALCIFEROL
     Indication: Prophylaxis
     Dosage: 15 GTT DROPS, QD
     Route: 048
     Dates: start: 20230314
  20. Ulcusan [Concomitant]
     Indication: Prophylaxis
     Dosage: 20 MILLIGRAM, QD
     Route: 048
     Dates: start: 20230404
  21. MAGNORM [Concomitant]
     Indication: Prophylaxis
     Dosage: 365 MILLIGRAM, QD
     Route: 048
     Dates: start: 20221228
  22. POLYETHYLENE GLYCOL 3350\POTASSIUM CHLORIDE\SODIUM BICARBONATE\SODIUM [Concomitant]
     Active Substance: POLYETHYLENE GLYCOL 3350\POTASSIUM CHLORIDE\SODIUM BICARBONATE\SODIUM CHLORIDE
     Indication: Prophylaxis
     Dosage: UNK
     Route: 048
     Dates: start: 20221228

REACTIONS (2)
  - Pancytopenia [Recovered/Resolved]
  - Cough [Recovered/Resolved]

NARRATIVE: CASE EVENT DATE: 20230424
